FAERS Safety Report 4287189-2 (Version None)
Quarter: 2004Q1

REPORT INFORMATION
  Report Type: 
  Country: None (occurrence: None)
  Receive Date: 20040204
  Receipt Date: 20040127
  Transmission Date: 20041129
  Serious: Yes (Death, Hospitalization, Other)
  Sender: FDA-Public Use
  Company Number: 2003114753

PATIENT
  Age: 67 Year
  Sex: Female

DRUGS (3)
  1. NEURONTIN [Suspect]
     Indication: FIBROMYALGIA
  2. OMEPRAZOLE [Concomitant]
  3. CLONAZEPAM [Concomitant]

REACTIONS (4)
  - BONE NEOPLASM MALIGNANT [None]
  - LUNG CANCER METASTATIC [None]
  - LUNG CARCINOMA CELL TYPE UNSPECIFIED STAGE IV [None]
  - PULMONARY OEDEMA [None]
